FAERS Safety Report 9278836 (Version 2)
Quarter: 2015Q2

REPORT INFORMATION
  Report Type: Spontaneous
  Country: US (occurrence: US)
  Receive Date: 20130508
  Receipt Date: 20150415
  Transmission Date: 20150821
  Serious: Yes (Life-Threatening, Other)
  Sender: FDA-Public Use
  Company Number: PHHY2013US044871

PATIENT
  Age: 56 Year
  Sex: Male

DRUGS (2)
  1. PROPOFOL. [Concomitant]
     Active Substance: PROPOFOL
     Indication: ANAESTHESIA
     Route: 065
  2. SUCCINYLCHOLINE CHLORIDE. [Suspect]
     Active Substance: SUCCINYLCHOLINE CHLORIDE
     Indication: ANAESTHESIA
     Route: 065

REACTIONS (8)
  - Hyperthermia malignant [Recovering/Resolving]
  - Muscle rigidity [Recovering/Resolving]
  - Respiratory acidosis [Recovering/Resolving]
  - Metabolic acidosis [Recovering/Resolving]
  - Encephalopathy [Recovering/Resolving]
  - Body temperature increased [Recovering/Resolving]
  - Tachycardia [Recovering/Resolving]
  - Decerebrate posture [Recovering/Resolving]
